FAERS Safety Report 4534935-6 (Version None)
Quarter: 2004Q4

REPORT INFORMATION
  Report Type: 
  Country: None (occurrence: None)
  Receive Date: 20041222
  Receipt Date: 20040825
  Transmission Date: 20050328
  Serious: No
  Sender: FDA-Public Use
  Company Number: US-BRISTOL-MYERS SQUIBB COMPANY-12682928

PATIENT
  Age: 89 Year
  Sex: Male
  Weight: 83 kg

DRUGS (3)
  1. PRAVACHOL [Suspect]
     Indication: BLOOD CHOLESTEROL INCREASED
     Route: 048
  2. MULTI-VITAMIN [Concomitant]
  3. ASPIRIN [Concomitant]

REACTIONS (1)
  - DIURETIC EFFECT [None]
